FAERS Safety Report 21017465 (Version 1)
Quarter: 2022Q2

REPORT INFORMATION
  Report Type: Spontaneous
  Country: US (occurrence: US)
  Receive Date: 20220628
  Receipt Date: 20220628
  Transmission Date: 20220721
  Serious: No
  Sender: FDA-Public Use
  Company Number: US-MYLANLABS-2022M1046484

PATIENT

DRUGS (2)
  1. ARMODAFINIL [Suspect]
     Active Substance: ARMODAFINIL
     Indication: Fatigue
     Dosage: UNK
     Route: 065
  2. ARMODAFINIL [Suspect]
     Active Substance: ARMODAFINIL
     Indication: Multiple sclerosis

REACTIONS (2)
  - Off label use [Unknown]
  - Drug ineffective [Unknown]
